FAERS Safety Report 20777436 (Version 2)
Quarter: 2022Q2

REPORT INFORMATION
  Report Type: Spontaneous
  Country: US (occurrence: US)
  Receive Date: 20220503
  Receipt Date: 20220512
  Transmission Date: 20220721
  Serious: Yes (Other)
  Sender: FDA-Public Use
  Company Number: US-CELLTRION INC.-2022US005464

PATIENT

DRUGS (2)
  1. TRUXIMA [Suspect]
     Active Substance: RITUXIMAB-ABBS
     Indication: Autoimmune myositis
     Dosage: 1000 MILLIGRAM (EVERY 6 MONTHS)
     Route: 042
     Dates: start: 20220228
  2. TRUXIMA [Suspect]
     Active Substance: RITUXIMAB-ABBS
     Dosage: 1000 MILLIGRAM (EVERY 6 MONTHS)
     Route: 042
     Dates: start: 20220328

REACTIONS (3)
  - Autoimmune myositis [Unknown]
  - Chest pain [Recovered/Resolved]
  - Off label use [Unknown]
